FAERS Safety Report 26112631 (Version 1)
Quarter: 2025Q4

REPORT INFORMATION
  Report Type: Report from Study
  Country: US (occurrence: US)
  Receive Date: 20251202
  Receipt Date: 20251202
  Transmission Date: 20260118
  Serious: Yes (Hospitalization, Other)
  Sender: TEVA
  Company Number: US-TEVA-VS-3380561

PATIENT
  Age: 41 Year
  Sex: Female

DRUGS (3)
  1. AUSTEDO XR [Suspect]
     Active Substance: DEUTETRABENAZINE
     Indication: Product used for unknown indication
     Dosage: ONCE A DAY
     Route: 065
  2. AUSTEDO XR [Suspect]
     Active Substance: DEUTETRABENAZINE
     Indication: Product used for unknown indication
     Route: 065
     Dates: end: 20251029
  3. AUSTEDO XR [Suspect]
     Active Substance: DEUTETRABENAZINE
     Indication: Product used for unknown indication
     Route: 065
     Dates: start: 2025

REACTIONS (20)
  - Seizure [Unknown]
  - Dizziness [Unknown]
  - Chills [Unknown]
  - Torticollis [Unknown]
  - Tic [Unknown]
  - Sinus congestion [Unknown]
  - Dystonia [Unknown]
  - Multiple sclerosis [Unknown]
  - Pharyngeal swelling [Not Recovered/Not Resolved]
  - Asthenia [Unknown]
  - Palpitations [Recovering/Resolving]
  - Lethargy [Unknown]
  - Dyspnoea [Unknown]
  - Condition aggravated [Unknown]
  - Drug ineffective [Unknown]
  - Heart rate irregular [Recovering/Resolving]
  - Tardive dyskinesia [Unknown]
  - Pyrexia [Unknown]
  - Drug hypersensitivity [Unknown]
  - Product use issue [Unknown]
